FAERS Safety Report 24379071 (Version 1)
Quarter: 2024Q3

REPORT INFORMATION
  Report Type: Spontaneous
  Country: CN (occurrence: CN)
  Receive Date: 20240930
  Receipt Date: 20240930
  Transmission Date: 20241017
  Serious: Yes (Other)
  Sender: NOVARTIS
  Company Number: CN-002147023-NVSC2024CN190434

PATIENT
  Age: 41 Year
  Sex: Female

DRUGS (2)
  1. ZOMETA [Suspect]
     Active Substance: ZOLEDRONIC ACID
     Indication: Metastases to bone
     Dosage: UNK
     Route: 065
     Dates: start: 2021, end: 2021
  2. ZOMETA [Suspect]
     Active Substance: ZOLEDRONIC ACID
     Indication: Colon cancer stage III

REACTIONS (5)
  - Colon cancer stage III [Unknown]
  - Malignant neoplasm progression [Unknown]
  - Cortisol increased [Recovering/Resolving]
  - Hypertension [Recovering/Resolving]
  - Product use in unapproved indication [Unknown]

NARRATIVE: CASE EVENT DATE: 20210101
